FAERS Safety Report 18744545 (Version 1)
Quarter: 2021Q1

REPORT INFORMATION
  Report Type: Spontaneous
  Country: US (occurrence: US)
  Receive Date: 20210115
  Receipt Date: 20210115
  Transmission Date: 20210419
  Serious: No
  Sender: FDA-Public Use
  Company Number: US-TEVA-2021-US-1868025

PATIENT
  Age: 70 Year
  Sex: Female

DRUGS (1)
  1. ENOXAPARIN SODIUM TEVA [Suspect]
     Active Substance: ENOXAPARIN SODIUM
     Indication: PULMONARY EMBOLISM
     Dosage: 120 MG / 0.8 ML
     Route: 065

REACTIONS (4)
  - Injection site swelling [Unknown]
  - Injection site pain [Unknown]
  - Needle issue [Unknown]
  - Injection site bruising [Unknown]
